FAERS Safety Report 24579795 (Version 1)
Quarter: 2024Q4

REPORT INFORMATION
  Report Type: Spontaneous
  Country: ES (occurrence: ES)
  Receive Date: 20241105
  Receipt Date: 20241105
  Transmission Date: 20250115
  Serious: Yes (Hospitalization)
  Sender: RANBAXY
  Company Number: ES-SUN PHARMACEUTICAL INDUSTRIES LTD-2024RR-476395

PATIENT
  Age: 67 Year
  Sex: Female
  Weight: 89 kg

DRUGS (1)
  1. TEMOZOLOMIDE [Suspect]
     Active Substance: TEMOZOLOMIDE
     Indication: Glioblastoma multiforme
     Dosage: 280 MILLIGRAM/24H/5D
     Route: 048
     Dates: start: 20240529

REACTIONS (2)
  - Pulmonary embolism [Recovering/Resolving]
  - Deep vein thrombosis [Recovered/Resolved]

NARRATIVE: CASE EVENT DATE: 20240824
